FAERS Safety Report 21980819 (Version 3)
Quarter: 2023Q1

REPORT INFORMATION
  Report Type: Spontaneous
  Country: GH (occurrence: GH)
  Receive Date: 20230211
  Receipt Date: 20230220
  Transmission Date: 20230418
  Serious: Yes (Death, Life-Threatening)
  Sender: FDA-Public Use
  Company Number: GH-002147023-NVSC2023GH031264

PATIENT
  Age: 67 Year
  Sex: Male
  Weight: 72 kg

DRUGS (2)
  1. GLIVEC [Suspect]
     Active Substance: IMATINIB MESYLATE
     Indication: Chronic myeloid leukaemia
     Dosage: 400 MG (4 X 100 MG)
     Route: 048
     Dates: start: 20110701, end: 202007
  2. TRENTAL [Concomitant]
     Active Substance: PENTOXIFYLLINE
     Indication: Product used for unknown indication
     Dosage: 400 MG
     Route: 048

REACTIONS (4)
  - Peripheral vascular disorder [Fatal]
  - Laryngeal disorder [Fatal]
  - Respiratory failure [Fatal]
  - Dysphonia [Unknown]

NARRATIVE: CASE EVENT DATE: 20200701
